FAERS Safety Report 9376186 (Version 7)
Quarter: 2014Q2

REPORT INFORMATION
  Report Type: Spontaneous
  Country: GB (occurrence: GB)
  Receive Date: 20130630
  Receipt Date: 20140504
  Transmission Date: 20141212
  Serious: Yes (Death, Hospitalization, Congenital Anomaly, Other)
  Sender: FDA-Public Use
  Company Number: GB-009507513-1306GBR014072

PATIENT
  Age: 1 Day
  Sex: Female
  Weight: 3.5 kg

DRUGS (9)
  1. ISENTRESS [Suspect]
     Indication: ANTIRETROVIRAL THERAPY
     Dosage: 400 MG, BID
     Route: 064
     Dates: start: 20130319, end: 20130521
  2. TRUVADA [Suspect]
     Indication: ANTIRETROVIRAL THERAPY
     Dosage: 1 TAB/CAP DAILY
     Route: 064
     Dates: start: 20130201, end: 20130214
  3. TRUVADA [Suspect]
     Dosage: 1 TAB/CAP DAILY
     Route: 064
     Dates: start: 20130319, end: 20130521
  4. KALETRA [Suspect]
     Indication: ANTIRETROVIRAL THERAPY
     Dosage: 4 TABS/CAPS DAILY, BID
     Route: 064
     Dates: start: 20130201, end: 20130214
  5. METHYLDOPA [Concomitant]
     Route: 064
  6. ANTIMICROBIAL (UNSPECIFIED) [Concomitant]
     Route: 064
  7. BUCCASTEM [Concomitant]
     Route: 064
  8. LABETALOL HYDROCHLORIDE [Concomitant]
  9. METOCLOPRAMIDE [Concomitant]
     Route: 064

REACTIONS (15)
  - Intraventricular haemorrhage [Fatal]
  - Death [Fatal]
  - Cerebral infarction [Not Recovered/Not Resolved]
  - Hypotonia [Not Recovered/Not Resolved]
  - Cardiac failure [Not Recovered/Not Resolved]
  - Hydrocephalus [Not Recovered/Not Resolved]
  - Hypotension [Not Recovered/Not Resolved]
  - Metabolic acidosis [Not Recovered/Not Resolved]
  - Necrosis [Not Recovered/Not Resolved]
  - Respiratory failure [Not Recovered/Not Resolved]
  - Thymus hypoplasia [Not Recovered/Not Resolved]
  - Renal tubular necrosis [Not Recovered/Not Resolved]
  - Renal failure acute [Not Recovered/Not Resolved]
  - Anaemia [Not Recovered/Not Resolved]
  - Foetal exposure during pregnancy [Recovered/Resolved]
